FAERS Safety Report 26202807 (Version 1)
Quarter: 2025Q4

REPORT INFORMATION
  Report Type: Spontaneous
  Country: US (occurrence: US)
  Receive Date: 20251226
  Receipt Date: 20251226
  Transmission Date: 20260118
  Serious: Yes (Hospitalization)
  Sender: ALEXION PHARMACEUTICALS
  Company Number: US-AstraZeneca-CH-01021502AP

PATIENT
  Sex: Female

DRUGS (1)
  1. BEVESPI AEROSPHERE [Suspect]
     Active Substance: FORMOTEROL FUMARATE\GLYCOPYRROLATE
     Dosage: UNK
     Route: 065

REACTIONS (6)
  - Illness [Unknown]
  - Influenza [Unknown]
  - Dyspnoea [Unknown]
  - General physical health deterioration [Unknown]
  - Device delivery system issue [Unknown]
  - Product use issue [Unknown]
